FAERS Safety Report 10248746 (Version 1)
Quarter: 2014Q2

REPORT INFORMATION
  Report Type: Spontaneous
  Country: US (occurrence: None)
  Receive Date: 20140618
  Receipt Date: 20140618
  Transmission Date: 20141212
  Serious: Yes (Death, Hospitalization)
  Sender: FDA-Public Use
  Company Number: None

PATIENT
  Age: 82 Year
  Sex: Male

DRUGS (5)
  1. XTANDI [Suspect]
     Indication: PROSTATE CANCER
     Route: 048
  2. NEUPOGEN [Concomitant]
  3. DEGARELIX [Concomitant]
  4. ARANESP [Concomitant]
  5. PREDNISONE [Concomitant]

REACTIONS (5)
  - Asthenia [None]
  - Diarrhoea [None]
  - Pneumonia [None]
  - Sepsis [None]
  - Cardiac failure [None]
